FAERS Safety Report 6742388-2 (Version None)
Quarter: 2010Q2

REPORT INFORMATION
  Report Type: 
  Country: None (occurrence: None)
  Receive Date: 20100524
  Receipt Date: 20100507
  Transmission Date: 20101027
  Serious: Yes (Life-Threatening, Hospitalization)
  Sender: FDA-Public Use
  Company Number: 2010001869

PATIENT
  Age: 66 Year
  Sex: Female

DRUGS (9)
  1. ERLOTINIB (ERLOTINIB) (TABLET) (ERLOTINIB) [Suspect]
     Indication: NON-SMALL CELL LUNG CANCER
     Dosage: ORAL
     Route: 048
     Dates: start: 20091224
  2. GEMCITABINE [Suspect]
     Indication: NON-SMALL CELL LUNG CANCER
     Dosage: 1350 MG, INTRAVENOUS
     Route: 042
     Dates: start: 20091210
  3. CARBOPLATIN [Suspect]
     Indication: NON-SMALL CELL LUNG CANCER
     Dosage: 380 MG, INTRAVENOUS
     Route: 042
     Dates: start: 20091210
  4. NOVOMIX (INSULIN ASPART) [Concomitant]
  5. AMLODIPINE [Concomitant]
  6. ATORVASTATIN CALCIUM [Concomitant]
  7. VASCORIDE [Concomitant]
  8. VITAMIN B COMPLEX (B-KOMPLEX ^LECIVA^) [Concomitant]
  9. FERROUS SULFATE TAB [Concomitant]

REACTIONS (2)
  - ANAEMIA [None]
  - NEUTROPENIA [None]
